FAERS Safety Report 10503395 (Version 1)
Quarter: 2014Q4

REPORT INFORMATION
  Report Type: Spontaneous
  Country: FR (occurrence: FR)
  Receive Date: 20141008
  Receipt Date: 20141008
  Transmission Date: 20150528
  Serious: Yes (Hospitalization)
  Sender: FDA-Public Use
  Company Number: FR-JNJFOC-20140924239

PATIENT
  Age: 74 Year
  Sex: Female

DRUGS (8)
  1. THERALITE [Suspect]
     Active Substance: LITHIUM CARBONATE
     Indication: OBSESSIVE-COMPULSIVE DISORDER
     Route: 048
     Dates: start: 20140827, end: 20140906
  2. RISPERDAL [Suspect]
     Active Substance: RISPERIDONE
     Indication: CONFUSIONAL STATE
     Route: 048
     Dates: start: 20140829, end: 20140906
  3. FLOXYFRAL [Suspect]
     Active Substance: FLUVOXAMINE
     Indication: DEPRESSION
     Route: 048
     Dates: start: 20140827, end: 20140829
  4. NOZINAN [Suspect]
     Active Substance: LEVOMEPROMAZINE
     Indication: CONFUSIONAL STATE
     Route: 048
     Dates: start: 20140829, end: 20140906
  5. RISPERDAL [Suspect]
     Active Substance: RISPERIDONE
     Indication: DELIRIUM
     Route: 048
     Dates: start: 20140829, end: 20140906
  6. NOZINAN [Suspect]
     Active Substance: LEVOMEPROMAZINE
     Indication: DELIRIUM
     Route: 048
     Dates: start: 20140829, end: 20140906
  7. THERALITE [Suspect]
     Active Substance: LITHIUM CARBONATE
     Indication: DEPRESSION
     Route: 048
     Dates: start: 20140827, end: 20140906
  8. FLOXYFRAL [Suspect]
     Active Substance: FLUVOXAMINE
     Indication: OBSESSIVE-COMPULSIVE DISORDER
     Route: 048
     Dates: start: 20140827, end: 20140829

REACTIONS (2)
  - Extrapyramidal disorder [Recovered/Resolved]
  - Coma [Unknown]

NARRATIVE: CASE EVENT DATE: 20140906
